FAERS Safety Report 4346988-9 (Version None)
Quarter: 2004Q1

REPORT INFORMATION
  Report Type: 
  Country: None (occurrence: None)
  Receive Date: 20040325
  Receipt Date: 20040203
  Transmission Date: 20041129
  Serious: No
  Sender: FDA-Public Use
  Company Number: USA040258384

PATIENT
  Age: 83 Year
  Sex: Female

DRUGS (9)
  1. FORTEO [Suspect]
     Indication: OSTEOPOROSIS
     Dosage: 20 UG/DAY
     Dates: start: 20301217, end: 20040117
  2. ISOSORBIDE [Concomitant]
  3. LASIX [Concomitant]
  4. SPIRONOLACTONE [Concomitant]
  5. REGLAN [Concomitant]
  6. PEPCID [Concomitant]
  7. ATROVENT [Concomitant]
  8. COMBIVENT [Concomitant]
  9. TYLENOL [Concomitant]

REACTIONS (2)
  - CONFUSIONAL STATE [None]
  - HEADACHE [None]
